FAERS Safety Report 11337492 (Version 1)
Quarter: 2015Q3

REPORT INFORMATION
  Report Type: Spontaneous
  Country: US (occurrence: US)
  Receive Date: 20150803
  Receipt Date: 20150803
  Transmission Date: 20151125
  Serious: Yes (Other)
  Sender: FDA-Public Use
  Company Number: US-ELI_LILLY_AND_COMPANY-US200907002748

PATIENT
  Age: 6 Year
  Sex: Male

DRUGS (2)
  1. ZYPREXA [Suspect]
     Active Substance: OLANZAPINE
     Dosage: 5 MG, UNK
     Dates: start: 200812
  2. DAYTRANA [Concomitant]
     Active Substance: METHYLPHENIDATE
     Indication: AFFECTIVE DISORDER
     Dosage: 11 MG, UNK
     Dates: start: 200812

REACTIONS (1)
  - Tardive dyskinesia [Unknown]
